FAERS Safety Report 7071389-2 (Version None)
Quarter: 2010Q4

REPORT INFORMATION
  Report Type: 
  Country: None (occurrence: None)
  Receive Date: 20101029
  Receipt Date: 20100719
  Transmission Date: 20110411
  Serious: No
  Sender: FDA-Public Use
  Company Number: A0708421A

PATIENT
  Age: 37 Year
  Sex: Female

DRUGS (14)
  1. ADVAIR DISKUS 100/50 [Suspect]
     Indication: ASTHMA
     Route: 055
     Dates: start: 20010101
  2. SINGULAIR [Concomitant]
  3. NASONEX [Concomitant]
  4. LEVOTHYROXINE [Concomitant]
  5. SUDAFED 12 HOUR [Concomitant]
  6. GUAIFENESIN [Concomitant]
  7. ANTIHISTAMINE [Concomitant]
  8. ZYRTEC [Concomitant]
  9. ACETAMINOPHEN [Concomitant]
  10. ALBUTEROL [Concomitant]
  11. ALBUTEROL SULFATE [Concomitant]
  12. VOSPIRE [Concomitant]
  13. ONE A DAY VITAMIN [Concomitant]
  14. FINACEA [Concomitant]

REACTIONS (5)
  - ANXIETY [None]
  - DRUG EXPOSURE DURING PREGNANCY [None]
  - DRUG INEFFECTIVE [None]
  - NERVOUSNESS [None]
  - TREMOR [None]
